FAERS Safety Report 20897371 (Version 1)
Quarter: 2022Q2

REPORT INFORMATION
  Report Type: Spontaneous
  Country: BR (occurrence: BR)
  Receive Date: 20220531
  Receipt Date: 20220531
  Transmission Date: 20220720
  Serious: Yes (Hospitalization, Other)
  Sender: FDA-Public Use
  Company Number: BR-009507513-2205BRA008276

PATIENT
  Age: 63 Year
  Sex: Female
  Weight: 41.55 kg

DRUGS (9)
  1. KEYTRUDA [Suspect]
     Active Substance: PEMBROLIZUMAB
     Indication: Lung carcinoma cell type unspecified stage IV
     Dosage: 200 MG
     Route: 042
     Dates: start: 20210927, end: 20211018
  2. CARBOPLATIN [Concomitant]
     Active Substance: CARBOPLATIN
     Dosage: 5 AUC
     Dates: start: 20210927, end: 20211018
  3. DEXAMETHASONE [Concomitant]
     Active Substance: DEXAMETHASONE
  4. ONDANSETRON HYDROCHLORIDE [Concomitant]
     Active Substance: ONDANSETRON HYDROCHLORIDE
     Dosage: DAY 1 OF EVERY CYCLE (PRE-CHEMOTHERAPY)
     Route: 042
     Dates: start: 20210927
  5. PEMETREXED DISODIUM [Concomitant]
     Active Substance: PEMETREXED DISODIUM
     Dates: start: 20210929, end: 20211010
  6. ABEMACICLIB [Concomitant]
     Active Substance: ABEMACICLIB
  7. FULVESTRANT [Concomitant]
     Active Substance: FULVESTRANT
  8. DENOSUMAB [Concomitant]
     Active Substance: DENOSUMAB
  9. GOSERELIN [Concomitant]
     Active Substance: GOSERELIN

REACTIONS (7)
  - Immune-mediated enterocolitis [Recovered/Resolved]
  - Diarrhoea [Unknown]
  - Pyrexia [Unknown]
  - Dehydration [Unknown]
  - Diarrhoea [Unknown]
  - Nausea [Unknown]
  - Product use in unapproved indication [Unknown]

NARRATIVE: CASE EVENT DATE: 20210927
